FAERS Safety Report 4996717-0 (Version None)
Quarter: 2006Q2

REPORT INFORMATION
  Report Type: 
  Country: None (occurrence: None)
  Receive Date: 20060509
  Receipt Date: 20041223
  Transmission Date: 20061013
  Serious: Yes (Hospitalization, Other)
  Sender: FDA-Public Use
  Company Number: US-MERCK-0412USA02862

PATIENT
  Age: 57 Year
  Sex: Female
  Weight: 73 kg

DRUGS (6)
  1. VIOXX [Suspect]
     Indication: ARTHRITIS
     Route: 048
     Dates: start: 20000608, end: 20041001
  2. VIOXX [Suspect]
     Indication: OSTEOARTHRITIS
     Route: 048
     Dates: start: 20000608, end: 20041001
  3. PREVACID [Concomitant]
     Route: 048
  4. PLAVIX [Concomitant]
     Route: 048
  5. ALPRAZOLAM [Concomitant]
     Route: 048
     Dates: start: 20001019
  6. [THERAPY UNSPECIFIED] [Concomitant]
     Route: 048

REACTIONS (17)
  - AMAUROSIS FUGAX [None]
  - BACK PAIN [None]
  - CAROTID ARTERY STENOSIS [None]
  - CHILLS [None]
  - CONTUSION [None]
  - DIARRHOEA [None]
  - GENITAL PRURITUS FEMALE [None]
  - HEADACHE [None]
  - LACERATION [None]
  - NAUSEA [None]
  - NECK PAIN [None]
  - PARAESTHESIA [None]
  - PYREXIA [None]
  - ROAD TRAFFIC ACCIDENT [None]
  - SKIN INFECTION [None]
  - TRANSIENT ISCHAEMIC ATTACK [None]
  - VOMITING [None]
